FAERS Safety Report 17474949 (Version 2)
Quarter: 2025Q3

REPORT INFORMATION
  Report Type: Spontaneous
  Country: EU (occurrence: EU)
  Receive Date: 20200228
  Receipt Date: 20250708
  Transmission Date: 20251021
  Serious: Yes (Other)
  Sender: AUROBINDO
  Company Number: EU-MYLANLABS-2020M1022641

PATIENT
  Age: 75 Year
  Sex: Female

DRUGS (4)
  1. PAROXETINE [Interacting]
     Active Substance: PAROXETINE
     Indication: Antidepressant therapy
     Route: 065
  2. METOPROLOL [Interacting]
     Active Substance: METOPROLOL
     Indication: Sinus tachycardia
     Route: 065
  3. MAGNESIUM [Concomitant]
     Active Substance: MAGNESIUM
     Indication: Product used for unknown indication
     Route: 065
  4. POTASSIUM [Concomitant]
     Active Substance: POTASSIUM
     Indication: Product used for unknown indication
     Route: 065

REACTIONS (2)
  - Bradycardia [Unknown]
  - Labelled drug-drug interaction medication error [Unknown]
